FAERS Safety Report 24153793 (Version 1)
Quarter: 2024Q3

REPORT INFORMATION
  Report Type: Report from Study
  Country: CA (occurrence: CA)
  Receive Date: 20240730
  Receipt Date: 20240730
  Transmission Date: 20241016
  Serious: Yes (Death)
  Sender: TEVA
  Company Number: CA-TEVA-VS-3225235

PATIENT
  Age: 60 Year
  Sex: Female

DRUGS (2)
  1. EVEROLIMUS [Suspect]
     Active Substance: EVEROLIMUS
     Indication: Breast cancer
     Route: 048
     Dates: start: 20231020
  2. LETROZOLE [Concomitant]
     Active Substance: LETROZOLE

REACTIONS (1)
  - Death [Fatal]
